FAERS Safety Report 8272144-8 (Version None)
Quarter: 2012Q2

REPORT INFORMATION
  Report Type: 
  Country: None (occurrence: None)
  Receive Date: 20120410
  Receipt Date: 20120105
  Transmission Date: 20120825
  Serious: No
  Sender: FDA-Public Use
  Company Number: US-ASTRAZENECA-2012SE00979

PATIENT
  Age: 46 Year
  Sex: Male

DRUGS (4)
  1. LEVOTHYROXINE SODIUM [Concomitant]
  2. NEXAVAR [Concomitant]
  3. AMLODIPINE BESYLATE [Concomitant]
  4. VANDETANIB [Suspect]
     Indication: BLOOD THYROID STIMULATING HORMONE ABNORMAL
     Route: 048

REACTIONS (2)
  - HEPATIC ENZYME INCREASED [None]
  - ARTHRALGIA [None]
